FAERS Safety Report 5517491-5 (Version None)
Quarter: 2007Q4

REPORT INFORMATION
  Report Type: 
  Country: None (occurrence: None)
  Receive Date: 20071114
  Receipt Date: 20071107
  Transmission Date: 20080405
  Serious: Yes (Hospitalization)
  Sender: FDA-Public Use
  Company Number: DE-JNJFOC-20071002155

PATIENT
  Sex: Male
  Weight: 74.8 kg

DRUGS (7)
  1. INVEGA [Suspect]
     Route: 048
  2. INVEGA [Suspect]
     Indication: PSYCHOTIC DISORDER
     Route: 048
  3. ATOSIL [Concomitant]
     Indication: RESTLESSNESS
     Route: 048
  4. ATOSIL [Concomitant]
     Indication: PSYCHOTIC DISORDER
     Route: 048
  5. EUTHYROX [Concomitant]
     Indication: THYROID DISORDER
     Route: 048
  6. DIAZEPAM [Concomitant]
     Route: 048
  7. DIAZEPAM [Concomitant]
     Indication: SEDATION
     Route: 048

REACTIONS (3)
  - AGGRESSION [None]
  - IRRITABILITY [None]
  - RESTLESSNESS [None]
